FAERS Safety Report 18343168 (Version 2)
Quarter: 2020Q4

REPORT INFORMATION
  Report Type: Report from Study
  Country: None (occurrence: CA)
  Receive Date: 20201005
  Receipt Date: 20201104
  Transmission Date: 20210113
  Serious: Yes (Other)
  Sender: FDA-Public Use
  Company Number: CA-ABBVIE-20K-028-3588530-00

PATIENT
  Sex: Female

DRUGS (2)
  1. HUMIRA [Suspect]
     Active Substance: ADALIMUMAB
     Indication: CROHN^S DISEASE
     Route: 058
     Dates: start: 20180426
  2. VENLASAXINE [Concomitant]
     Indication: ANXIETY
     Route: 048
     Dates: start: 2020

REACTIONS (9)
  - Hypoaesthesia [Not Recovered/Not Resolved]
  - Irritability [Not Recovered/Not Resolved]
  - Ovarian cyst [Unknown]
  - Insomnia [Not Recovered/Not Resolved]
  - Anxiety [Recovering/Resolving]
  - Mobility decreased [Not Recovered/Not Resolved]
  - Feeling abnormal [Not Recovered/Not Resolved]
  - Hypophagia [Not Recovered/Not Resolved]
  - Tremor [Not Recovered/Not Resolved]

NARRATIVE: CASE EVENT DATE: 2020
